FAERS Safety Report 15853826 (Version 3)
Quarter: 2019Q1

REPORT INFORMATION
  Report Type: Spontaneous
  Country: US (occurrence: US)
  Receive Date: 20190122
  Receipt Date: 20190218
  Transmission Date: 20190417
  Serious: No
  Sender: FDA-Public Use
  Company Number: US-PFIZER INC-2019024225

PATIENT
  Sex: Female

DRUGS (1)
  1. IBRANCE [Suspect]
     Active Substance: PALBOCICLIB
     Indication: BREAST CANCER METASTATIC
     Dosage: 125 MG, CYCLIC [FOR 21 DAYS/15-16 DAYS]
     Dates: start: 201810

REACTIONS (7)
  - Constipation [Unknown]
  - Nausea [Unknown]
  - Hypophagia [Unknown]
  - Fatigue [Unknown]
  - Alopecia [Unknown]
  - Appetite disorder [Not Recovered/Not Resolved]
  - Weight decreased [Unknown]
